FAERS Safety Report 7291438-6 (Version None)
Quarter: 2011Q1

REPORT INFORMATION
  Report Type: 
  Country: None (occurrence: None)
  Receive Date: 20110214
  Receipt Date: 20110207
  Transmission Date: 20110831
  Serious: Yes (Death)
  Sender: FDA-Public Use
  Company Number: US-GENZYME-CLOF-1001353

PATIENT
  Sex: Male
  Weight: 87.5 kg

DRUGS (15)
  1. FLUCONAZOLE [Concomitant]
     Indication: PROPHYLAXIS
     Dosage: 200 MG, BID
     Route: 048
     Dates: start: 20101005, end: 20101206
  2. PRAVASTATIN [Concomitant]
     Indication: HYPERLIPIDAEMIA
     Dosage: UNK
     Route: 048
     Dates: end: 20101206
  3. CLOLAR [Suspect]
     Indication: ACUTE MYELOID LEUKAEMIA
     Dosage: 30.8 MG, ONCE
     Route: 042
     Dates: start: 20101029, end: 20101029
  4. CLOFARABINE [Suspect]
     Dosage: 60 MG, ONCE
     Route: 048
     Dates: start: 20101031, end: 20101031
  5. PLATELETS [Concomitant]
     Indication: BLOOD PRODUCT TRANSFUSION DEPENDENT
     Dosage: UNK
     Route: 042
     Dates: start: 20100101
  6. RED BLOOD CELLS [Concomitant]
  7. PLATELETS [Concomitant]
  8. VALTREX [Concomitant]
     Indication: PROPHYLAXIS
     Dosage: 500 MG, BID
     Route: 048
     Dates: start: 20101025, end: 20101206
  9. REGULAR INSULIN [Concomitant]
     Indication: PRODUCT USED FOR UNKNOWN INDICATION
     Dosage: SLIDING SCALE
     Route: 065
  10. CLOLAR [Suspect]
     Indication: MYELODYSPLASTIC SYNDROME
     Dosage: 30.8 MG, ONCE
     Route: 042
     Dates: start: 20101025, end: 20101025
  11. CLOFARABINE [Suspect]
     Indication: MYELODYSPLASTIC SYNDROME
     Dosage: 60 MG, ONCE
     Route: 048
     Dates: start: 20101027, end: 20101027
  12. CLOFARABINE [Suspect]
     Indication: ACUTE MYELOID LEUKAEMIA
     Dosage: 60 MG, ONCE
     Route: 048
     Dates: start: 20101030, end: 20101030
  13. RED BLOOD CELLS [Concomitant]
     Indication: BLOOD PRODUCT TRANSFUSION DEPENDENT
     Dosage: UNK
     Route: 042
     Dates: start: 20100101
  14. LEVAQUIN [Concomitant]
     Indication: PROPHYLAXIS
     Dosage: 500 MG, QD
     Route: 048
     Dates: start: 20101026, end: 20101206
  15. CIMETIDINE [Concomitant]
     Indication: PRODUCT USED FOR UNKNOWN INDICATION
     Dosage: UNK
     Route: 065

REACTIONS (1)
  - CEREBRAL HAEMORRHAGE [None]
